FAERS Safety Report 12606389 (Version 1)
Quarter: 2016Q3

REPORT INFORMATION
  Report Type: Spontaneous
  Country: US (occurrence: None)
  Receive Date: 20160728
  Receipt Date: 20160728
  Transmission Date: 20161109
  Serious: No
  Sender: FDA-Public Use
  Company Number: None

PATIENT
  Age: 74 Year
  Sex: Female
  Weight: 74.84 kg

DRUGS (8)
  1. TERBINAFINE GENERIC FOR LAMISIL CAMBER PHARMACEUTICAL INC. [Suspect]
     Active Substance: TERBINAFINE
     Indication: FUNGAL INFECTION
     Dosage: 1 PILL ONCE DAILY BY MOUTH WITH FOOD
     Route: 048
     Dates: start: 20160607, end: 20160617
  2. VITAMIN D3 [Concomitant]
     Active Substance: CHOLECALCIFEROL
  3. OXYBUTYNIN ER [Concomitant]
     Active Substance: OXYBUTYNIN
  4. FIBER CAPSULES [Concomitant]
  5. CALCIUM CITRATE [Concomitant]
     Active Substance: CALCIUM CITRATE
  6. TERBINAFINE GENERIC FOR LAMISIL CAMBER PHARMACEUTICAL INC. [Suspect]
     Active Substance: TERBINAFINE
     Indication: LOCALISED INFECTION
     Dosage: 1 PILL ONCE DAILY BY MOUTH WITH FOOD
     Route: 048
     Dates: start: 20160607, end: 20160617
  7. CHOLESTYRAMINE POWDER [Concomitant]
     Active Substance: CHOLESTYRAMINE
  8. GABAPENTIN. [Concomitant]
     Active Substance: GABAPENTIN

REACTIONS (4)
  - Decreased appetite [None]
  - Visual impairment [None]
  - Abdominal pain [None]
  - Ageusia [None]

NARRATIVE: CASE EVENT DATE: 20160710
